FAERS Safety Report 6977327-2 (Version None)
Quarter: 2010Q3

REPORT INFORMATION
  Report Type: 
  Country: None (occurrence: None)
  Receive Date: 20100910
  Receipt Date: 20100824
  Transmission Date: 20110219
  Serious: Yes (Other)
  Sender: FDA-Public Use
  Company Number: PHHY2010BR58119

PATIENT
  Age: 61 Year
  Sex: Male

DRUGS (9)
  1. CLOFAZIMINE [Suspect]
     Indication: LEPROMATOUS LEPROSY
     Dosage: 300 MG
  2. CLOFAZIMINE [Suspect]
     Dosage: 50 MG/DAY
  3. DAPSONE [Suspect]
     Dosage: 100 MG/DAY
  4. RIFAMPICIN [Concomitant]
     Dosage: 600 MG, UNK
  5. TACROLIMUS [Concomitant]
     Dosage: 6 MG/DAY
  6. MYCOPHENOLATE MOFETIL [Concomitant]
     Dosage: 2 G/DAY
  7. PREDNISONE [Concomitant]
     Dosage: 0.5 MG/KG/DAY
  8. PREDNISONE [Concomitant]
     Dosage: 10 MG/DAY
  9. NSAID'S [Concomitant]

REACTIONS (6)
  - ERYTHEMA [None]
  - HAEMOLYTIC ANAEMIA [None]
  - HEPATIC ENZYME INCREASED [None]
  - LEPROMATOUS LEPROSY [None]
  - PAIN OF SKIN [None]
  - SKIN LESION [None]
